FAERS Safety Report 9818366 (Version 1)
Quarter: 2014Q1

REPORT INFORMATION
  Report Type: Spontaneous
  Country: US (occurrence: US)
  Receive Date: 20140115
  Receipt Date: 20140115
  Transmission Date: 20141002
  Serious: Yes (Other)
  Sender: FDA-Public Use
  Company Number: US-PFIZER INC-2014008335

PATIENT
  Sex: Male

DRUGS (1)
  1. CHANTIX [Suspect]
     Dosage: UNK
     Dates: start: 201312

REACTIONS (4)
  - Hallucination, visual [Unknown]
  - Hypersomnia [Unknown]
  - Feeling abnormal [Unknown]
  - Fatigue [Unknown]
